FAERS Safety Report 10216592 (Version 2)
Quarter: 2014Q2

REPORT INFORMATION
  Report Type: Report from Study
  Country: US (occurrence: US)
  Receive Date: 20140604
  Receipt Date: 20140604
  Transmission Date: 20141212
  Serious: Yes (Hospitalization)
  Sender: FDA-Public Use
  Company Number: US-VERTEX PHARMACEUTICALS INC-2014-002277

PATIENT
  Age: 55 Year
  Sex: Female
  Weight: 142 kg

DRUGS (22)
  1. VX-809 FDC [Suspect]
     Indication: CYSTIC FIBROSIS
     Dosage: UNK
     Route: 048
     Dates: start: 20140312, end: 20140521
  2. VX-770 FDC [Suspect]
     Indication: CYSTIC FIBROSIS
     Dosage: UNK
     Route: 048
     Dates: start: 20140312, end: 20140521
  3. VX-809 FDC OR PLACEBO [Suspect]
     Indication: CYSTIC FIBROSIS
     Dosage: UNK
     Route: 048
     Dates: start: 20130926, end: 20140312
  4. VX-770 FDC OR PLACEBO [Suspect]
     Indication: CYSTIC FIBROSIS
     Dosage: UNK
     Route: 048
     Dates: start: 20130926, end: 20140312
  5. NACL [Concomitant]
     Dosage: 1000 ML, SINGLE
     Route: 040
  6. ALBUTEROL [Concomitant]
     Dosage: 2.5 MG, QID
     Route: 055
  7. AMYLASE/LIPASE/PROTEASE [Concomitant]
     Dosage: 96000 IU, TID W/MEALS
     Route: 048
  8. BUDESONIDE W/FORMOTEROL FUMARATE [Concomitant]
     Dosage: 2 PUFFS BID
     Route: 055
  9. CEFEPIME [Concomitant]
     Dosage: 2 G, QID
     Route: 042
  10. MULTIVITAMIN [Concomitant]
     Dosage: 1 DF, TID
     Route: 048
  11. CHOLECALCIFEROL [Concomitant]
     Dosage: 400 IU, BID
     Route: 048
  12. CIPROFLOXACIN [Concomitant]
     Dosage: 400 MG, TID
     Route: 042
  13. DORNASE ALFA [Concomitant]
     Dosage: 2.5 MG, BID
     Route: 055
  14. FLUTICASONE [Concomitant]
     Dosage: 2 SPRAYS EACH NARE
     Route: 045
  15. IBUPROFEN [Concomitant]
     Dosage: 600 MG, SINGLE
     Route: 048
  16. PHYTONADIONE [Concomitant]
     Dosage: 10 MG, SINGLE
     Route: 048
  17. SERTRALINE [Concomitant]
     Dosage: 75 MG, QD
     Route: 048
  18. SODIUM CHLORIDE [Concomitant]
     Dosage: 15 ML, BID
     Route: 055
  19. VANCOMYCIN [Concomitant]
     Dosage: 1250 MG, SINGLE
     Route: 042
  20. VITAMIN E [Concomitant]
     Dosage: 8000 IU, QD
     Route: 048
  21. ANTIBIOTICS [Concomitant]
     Dosage: UNK
     Route: 048
     Dates: start: 2014
  22. ANTIBIOTICS [Concomitant]
     Dosage: UNK
     Route: 042
     Dates: start: 2014

REACTIONS (1)
  - Infective pulmonary exacerbation of cystic fibrosis [Not Recovered/Not Resolved]
